FAERS Safety Report 8020580-7 (Version None)
Quarter: 2012Q1

REPORT INFORMATION
  Report Type: 
  Country: None (occurrence: None)
  Receive Date: 20120103
  Receipt Date: 20111221
  Transmission Date: 20120608
  Serious: Yes (Other)
  Sender: FDA-Public Use
  Company Number: US-ELI_LILLY_AND_COMPANY-US201010005700

PATIENT
  Sex: Female
  Weight: 63.492 kg

DRUGS (16)
  1. LIPITOR [Concomitant]
     Dosage: 20 MG, QD
  2. CELEBREX [Concomitant]
  3. COQ-10 [Concomitant]
  4. CELEXA [Concomitant]
     Dosage: 20 MG, QD
  5. TRAMADOL GENERICS [Concomitant]
     Dosage: 50 MG, BID
  6. FORTEO [Suspect]
     Dosage: 20 UG, QD
     Route: 065
  7. VITAMIN B12 NOS [Concomitant]
  8. VITAMIN B6 [Concomitant]
  9. VITAMIN D [Concomitant]
  10. FORTEO [Suspect]
     Indication: OSTEOPOROSIS
     Dosage: 20 UG, DAILY (1/D)
     Route: 065
     Dates: start: 20101020
  11. FORTEO [Suspect]
     Dosage: 20 UG, QD
     Route: 065
  12. FISH OIL [Concomitant]
  13. CALCIUM CITRATE [Concomitant]
  14. DIURETICS [Concomitant]
  15. FOSAMAX [Concomitant]
  16. ASPIRIN [Concomitant]

REACTIONS (4)
  - OVERDOSE [None]
  - BREAST CANCER STAGE III [None]
  - ANXIETY [None]
  - NERVOUSNESS [None]
